FAERS Safety Report 5296206-2 (Version None)
Quarter: 2007Q2

REPORT INFORMATION
  Report Type: 
  Country: None (occurrence: None)
  Receive Date: 20070413
  Receipt Date: 20070410
  Transmission Date: 20071010
  Serious: Yes (Hospitalization, Other)
  Sender: FDA-Public Use
  Company Number: JP-JPN-A200701326

PATIENT
  Age: 61 Year
  Sex: Male
  Weight: 47 kg

DRUGS (29)
  1. ALKERAN [Suspect]
     Indication: STEM CELL TRANSPLANT
     Route: 042
     Dates: start: 20060516, end: 20060517
  2. ZOVIRAX [Suspect]
     Route: 042
     Dates: start: 20060518, end: 20060725
  3. DECADRON [Suspect]
     Dosage: 40MG PER DAY
     Dates: start: 20060215, end: 20060405
  4. ONCOVIN [Suspect]
     Dosage: .6MG PER DAY
     Dates: start: 20060215, end: 20060320
  5. ADRIAMYCIN PFS [Suspect]
     Dosage: 14MG PER DAY
     Dates: start: 20060215, end: 20060320
  6. ENDOXAN [Suspect]
     Dosage: 3000MG PER DAY
     Route: 042
     Dates: start: 20060413, end: 20060414
  7. SOLU-MEDROL [Concomitant]
     Indication: STEM CELL TRANSPLANT
     Route: 042
     Dates: start: 20060516, end: 20060517
  8. NEUTROGIN [Concomitant]
     Dates: start: 20060524, end: 20060601
  9. KYTRIL [Concomitant]
     Route: 042
     Dates: start: 20060516, end: 20060517
  10. FUROSEMIDE [Concomitant]
     Route: 042
     Dates: start: 20060516, end: 20060517
  11. FUROSEMIDE [Concomitant]
     Route: 042
     Dates: start: 20060519, end: 20060519
  12. VENOGLOBULIN [Concomitant]
     Route: 042
     Dates: start: 20060518, end: 20060520
  13. HAPTOGLOBIN [Concomitant]
     Route: 042
     Dates: start: 20060519, end: 20060519
  14. SAXIZON [Concomitant]
     Dates: start: 20060519, end: 20060519
  15. NOVOLIN R [Concomitant]
     Dates: start: 20060501, end: 20060527
  16. NOVOLIN R [Concomitant]
     Dates: start: 20060501, end: 20060529
  17. ROPION [Concomitant]
     Route: 042
     Dates: start: 20060619, end: 20060619
  18. BAKTAR [Concomitant]
     Dosage: 4G TWO TIMES PER WEEK
     Route: 048
     Dates: start: 20060215
  19. GASTER D [Concomitant]
     Route: 048
     Dates: start: 20060215
  20. DIOVAN [Concomitant]
     Route: 048
  21. UNKNOWN DRUG [Concomitant]
     Route: 048
  22. AMLODIN [Concomitant]
     Route: 048
  23. PLETAL [Concomitant]
     Route: 048
  24. POLYMYXIN B SULFATE [Concomitant]
     Route: 048
     Dates: start: 20060516, end: 20060530
  25. ITRACONAZOLE [Concomitant]
     Route: 048
     Dates: start: 20060516, end: 20060530
  26. VANCOMYCIN [Concomitant]
     Route: 048
     Dates: start: 20060525, end: 20060530
  27. LEVOFLOXACIN [Concomitant]
     Route: 048
     Dates: start: 20060516, end: 20060523
  28. LEVOFLOXACIN [Concomitant]
     Route: 048
     Dates: start: 20060606, end: 20060617
  29. ASTOMIN [Concomitant]
     Route: 048
     Dates: start: 20060621, end: 20060626

REACTIONS (2)
  - HERPES ZOSTER [None]
  - THROMBOCYTOPENIA [None]
